APPROVED DRUG PRODUCT: STERILE WATER FOR INJECTION
Active Ingredient: STERILE WATER FOR INJECTION
Strength: 100% (3ML)
Dosage Form/Route: LIQUID;N/A
Application: A211188 | Product #003
Applicant: MEDEFIL INC
Approved: Dec 2, 2019 | RLD: No | RS: Yes | Type: RX